FAERS Safety Report 4382834-5 (Version None)
Quarter: 2004Q2

REPORT INFORMATION
  Report Type: 
  Country: None (occurrence: None)
  Receive Date: 20040602
  Receipt Date: 20031001
  Transmission Date: 20050107
  Serious: Yes (Hospitalization, Other)
  Sender: FDA-Public Use
  Company Number: NSADSS2001036499

PATIENT
  Age: 56 Year
  Sex: Female
  Weight: 136.0791 kg

DRUGS (5)
  1. PROPULSID [Suspect]
     Indication: UNEVALUABLE EVENT
     Dosage: ORAL
     Route: 048
     Dates: start: 19970808
  2. CLARITHROMYCIN [Concomitant]
  3. CIPROFLOXACIN [Concomitant]
  4. FUROSEMIDE [Concomitant]
  5. VERAPAMIL [Concomitant]

REACTIONS (5)
  - CHEST PAIN [None]
  - EPISTAXIS [None]
  - FATIGUE [None]
  - MEDICATION ERROR [None]
  - OEDEMA [None]
